FAERS Safety Report 6785221-5 (Version None)
Quarter: 2010Q2

REPORT INFORMATION
  Report Type: 
  Country: None (occurrence: None)
  Receive Date: 20100622
  Receipt Date: 20100622
  Transmission Date: 20101027
  Serious: Yes (Life-Threatening)
  Sender: FDA-Public Use
  Company Number: None

PATIENT
  Age: 61 Year
  Sex: Male
  Weight: 68 kg

DRUGS (2)
  1. GLYBURIDE [Suspect]
     Indication: DIABETES MELLITUS
     Dosage: 5 MG BID PO
     Route: 048
     Dates: start: 20081211, end: 20100615
  2. INSULIN [Suspect]
     Indication: DIABETES MELLITUS
     Dosage: 5 UNITS BID SQ
     Route: 058
     Dates: start: 20090113, end: 20100615

REACTIONS (4)
  - DIZZINESS [None]
  - FALL [None]
  - HYPOGLYCAEMIA [None]
  - SYNCOPE [None]
